FAERS Safety Report 18877196 (Version 1)
Quarter: 2021Q1

REPORT INFORMATION
  Report Type: Other
  Country: CN (occurrence: CN)
  Receive Date: 20210211
  Receipt Date: 20210211
  Transmission Date: 20210420
  Serious: Yes (Other)
  Sender: FDA-Public Use
  Company Number: CN-ROCHE-2762103

PATIENT

DRUGS (3)
  1. SODIUM CHLORIDE. [Concomitant]
     Active Substance: SODIUM CHLORIDE
  2. TOCILIZUMAB. [Suspect]
     Active Substance: TOCILIZUMAB
     Dosage: AFTER 12 WEEKS, IT WAS CHANGED ACCORDING THE CLINICAL MANIFESTATION, AND THE DOSAGE WAS THE SAME AS
     Route: 041
  3. TOCILIZUMAB. [Suspect]
     Active Substance: TOCILIZUMAB
     Indication: STILL^S DISEASE
     Dosage: THE DOSE WAS 8 MG/KG FOR BODY MASS GREATER THAN OR EQUAL TO 30 KG; THE DOSE WAS 12 MG/KG FOR BODY MA
     Route: 041

REACTIONS (2)
  - Haemophagocytic lymphohistiocytosis [Unknown]
  - Hepatic function abnormal [Unknown]
